FAERS Safety Report 9157641 (Version 3)
Quarter: 2013Q3

REPORT INFORMATION
  Report Type: Report from Study
  Country: DE (occurrence: DE)
  Receive Date: 20130312
  Receipt Date: 20130718
  Transmission Date: 20140515
  Serious: Yes (Life-Threatening, Hospitalization)
  Sender: FDA-Public Use
  Company Number: DE-BAYER-2013-022170

PATIENT
  Age: 38 Year
  Sex: Male
  Weight: 200 kg

DRUGS (2)
  1. BETAFERON [Suspect]
     Indication: MULTIPLE SCLEROSIS
     Dosage: UNK UNK, QOD
  2. FLU VACCINATION [Suspect]
     Dosage: UNK
     Dates: start: 20130129, end: 20130129

REACTIONS (4)
  - Immune thrombocytopenic purpura [Recovering/Resolving]
  - Subcutaneous haematoma [Recovering/Resolving]
  - Petechiae [Recovering/Resolving]
  - Epistaxis [Recovering/Resolving]
